FAERS Safety Report 4968054-1 (Version None)
Quarter: 2006Q1

REPORT INFORMATION
  Report Type: 
  Country: None (occurrence: None)
  Receive Date: 20060201
  Receipt Date: 20051008
  Transmission Date: 20060701
  Serious: No
  Sender: FDA-Public Use
  Company Number: 2005PV002985

PATIENT
  Age: 46 Year
  Sex: Female
  Weight: 86.1834 kg

DRUGS (6)
  1. BYETTA [Suspect]
     Indication: DIABETES MELLITUS NON-INSULIN-DEPENDENT
     Dosage: 5 MCG;BID;SC
     Route: 058
     Dates: start: 20051003, end: 20051008
  2. PROTONIX [Concomitant]
  3. METFORMIN [Concomitant]
  4. LOTREL [Concomitant]
  5. TOPROL-XL [Concomitant]
  6. AMILORIDE HCL AND HYDROCHLOROTHIAZIDE [Concomitant]

REACTIONS (3)
  - DECREASED APPETITE [None]
  - GASTROOESOPHAGEAL REFLUX DISEASE [None]
  - WEIGHT DECREASED [None]
